FAERS Safety Report 16172030 (Version 8)
Quarter: 2019Q3

REPORT INFORMATION
  Report Type: Spontaneous
  Country: CZ (occurrence: CZ)
  Receive Date: 20190409
  Receipt Date: 20190926
  Transmission Date: 20191004
  Serious: Yes (Other)
  Sender: FDA-Public Use
  Company Number: CZ-AUROBINDO-AUR-APL-2019-018292

PATIENT
  Age: 66 Year
  Sex: Male
  Weight: 90 kg

DRUGS (7)
  1. TRAMADOL. [Suspect]
     Active Substance: TRAMADOL
     Indication: MUSCULOSKELETAL PAIN
     Dosage: UNK
     Route: 065
  2. TRAMADOL. [Suspect]
     Active Substance: TRAMADOL
     Indication: PAIN
  3. PARACETAMOL [Suspect]
     Active Substance: ACETAMINOPHEN
     Indication: PAIN
     Dosage: UNK
     Route: 048
  4. DICLOFENAC [Suspect]
     Active Substance: DICLOFENAC
     Indication: PAIN
     Dosage: 100 MILLIGRAM, DAILY
     Route: 048
  5. DICLOFENAC [Suspect]
     Active Substance: DICLOFENAC
     Indication: SPINAL PAIN
     Dosage: 2 DOSAGE FORM
     Route: 065
  6. PARACETAMOL [Suspect]
     Active Substance: ACETAMINOPHEN
     Indication: SPINAL PAIN
  7. DICLOFENAC [Suspect]
     Active Substance: DICLOFENAC
     Dosage: UNK
     Route: 065

REACTIONS (14)
  - Blood pressure increased [Unknown]
  - Nausea [Recovered/Resolved]
  - Gastrointestinal haemorrhage [Unknown]
  - Drug intolerance [Unknown]
  - Therapeutic response decreased [Unknown]
  - Drug ineffective [Unknown]
  - Discoloured vomit [Recovered/Resolved]
  - Gastric haemorrhage [Recovered/Resolved]
  - Abdominal pain [Unknown]
  - Gastric mucosal lesion [Unknown]
  - Abdominal discomfort [Recovered/Resolved]
  - Abdominal pain upper [Recovered/Resolved]
  - Vomiting [Unknown]
  - Haematemesis [Unknown]
